FAERS Safety Report 19716187 (Version 1)
Quarter: 2021Q3

REPORT INFORMATION
  Report Type: Spontaneous
  Country: US (occurrence: US)
  Receive Date: 20210819
  Receipt Date: 20210819
  Transmission Date: 20211014
  Serious: Yes (Other)
  Sender: FDA-Public Use
  Company Number: US-ORPHANEU-2021003239

PATIENT

DRUGS (1)
  1. ISTURISA [Suspect]
     Active Substance: OSILODROSTAT PHOSPHATE
     Indication: PITUITARY-DEPENDENT CUSHING^S SYNDROME
     Dosage: 1 MILLIGRAM, BID
     Route: 048
     Dates: start: 20210707, end: 20210723

REACTIONS (8)
  - Diarrhoea [Unknown]
  - Metabolic acidosis [Not Recovered/Not Resolved]
  - Acute kidney injury [Unknown]
  - Muscular weakness [Unknown]
  - Speech disorder [Unknown]
  - Gait disturbance [Unknown]
  - Hyperkalaemia [Unknown]
  - Dehydration [Unknown]

NARRATIVE: CASE EVENT DATE: 202107
